FAERS Safety Report 18673654 (Version 5)
Quarter: 2021Q3

REPORT INFORMATION
  Report Type: Spontaneous
  Country: US (occurrence: US)
  Receive Date: 20201228
  Receipt Date: 20210916
  Transmission Date: 20211014
  Serious: No
  Sender: FDA-Public Use
  Company Number: US-TAKEDA-2020TUS060484

PATIENT
  Age: 52 Year
  Sex: Female
  Weight: 88.44 kg

DRUGS (5)
  1. BRIGATINIB [Suspect]
     Active Substance: BRIGATINIB
     Dosage: 30 MILLIGRAM, QD
     Route: 048
     Dates: start: 20201211
  2. TYLENOL [Concomitant]
     Active Substance: ACETAMINOPHEN
     Dosage: UNK
     Route: 065
  3. BRIGATINIB [Suspect]
     Active Substance: BRIGATINIB
     Indication: LUNG NEOPLASM MALIGNANT
     Dosage: 180 MILLIGRAM, QD
     Route: 048
     Dates: start: 202012
  4. BRIGATINIB [Suspect]
     Active Substance: BRIGATINIB
     Dosage: 120 MILLIGRAM, QD
     Route: 048
     Dates: start: 20210105
  5. OMEPRAZOLE. [Concomitant]
     Active Substance: OMEPRAZOLE
     Dosage: UNK
     Route: 065

REACTIONS (8)
  - Rash erythematous [Unknown]
  - Rash pruritic [Unknown]
  - Dry skin [Recovering/Resolving]
  - Product dose omission issue [Unknown]
  - Retching [Unknown]
  - Vomiting [Unknown]
  - Blood cholesterol increased [Unknown]
  - Skin mass [Recovering/Resolving]

NARRATIVE: CASE EVENT DATE: 20201214
